FAERS Safety Report 16078152 (Version 1)
Quarter: 2019Q2

REPORT INFORMATION
  Report Type: Spontaneous
  Country: US (occurrence: US)
  Receive Date: 20190315
  Receipt Date: 20190315
  Transmission Date: 20190711
  Serious: Yes (Disabling)
  Sender: FDA-Public Use
  Company Number: None

PATIENT
  Age: 73 Year
  Sex: Female
  Weight: 67.5 kg

DRUGS (1)
  1. CIPROFLOXACIN 250 MG. TABLETS [Suspect]
     Active Substance: CIPROFLOXACIN
     Indication: URINARY TRACT INFECTION
     Dosage: ?          QUANTITY:1 TABLET(S);?
     Route: 048
     Dates: start: 20181221, end: 20181228

REACTIONS (10)
  - Musculoskeletal stiffness [None]
  - Limb discomfort [None]
  - Drug ineffective [None]
  - Bladder pain [None]
  - Joint stiffness [None]
  - Pain in extremity [None]
  - Fibromyalgia [None]
  - Joint noise [None]
  - Pain [None]
  - Arthralgia [None]

NARRATIVE: CASE EVENT DATE: 20181221
